FAERS Safety Report 20680606 (Version 2)
Quarter: 2022Q2

REPORT INFORMATION
  Report Type: Spontaneous
  Country: JP (occurrence: JP)
  Receive Date: 20220406
  Receipt Date: 20220523
  Transmission Date: 20220721
  Serious: Yes (Hospitalization, Other)
  Sender: FDA-Public Use
  Company Number: JP-PFIZER INC-202200496179

PATIENT
  Age: 77 Year
  Sex: Male
  Weight: 50.1 kg

DRUGS (5)
  1. CELECOXIB [Suspect]
     Active Substance: CELECOXIB
     Indication: Back pain
     Dosage: 100 MG, 1X/DAY
     Route: 048
     Dates: end: 20211125
  2. REBAMIPIDE [Suspect]
     Active Substance: REBAMIPIDE
     Indication: Back pain
     Dosage: 100 MG, 1X/DAY
     Route: 048
     Dates: end: 20211125
  3. LINAGLIPTIN [Concomitant]
     Active Substance: LINAGLIPTIN
  4. CALONAL [Concomitant]
     Active Substance: ACETAMINOPHEN
  5. OPALMON [Concomitant]
     Active Substance: LIMAPROST

REACTIONS (1)
  - Interstitial lung disease [Recovering/Resolving]

NARRATIVE: CASE EVENT DATE: 20211121
